FAERS Safety Report 4289014-2 (Version None)
Quarter: 2004Q1

REPORT INFORMATION
  Report Type: 
  Country: None (occurrence: None)
  Receive Date: 20040203
  Receipt Date: 20031007
  Transmission Date: 20041129
  Serious: No
  Sender: FDA-Public Use
  Company Number: 03P-163-0236510-00

PATIENT
  Age: 19 Year
  Sex: Female

DRUGS (2)
  1. VICODIN [Suspect]
     Indication: PAIN
     Dosage: 4 TABLET, PER ORAL
     Dates: start: 20030926
  2. MIDOL [Suspect]
     Indication: PAIN
     Dosage: 6000 MG, 1 IN 1 D, PER ORAL
     Route: 048
     Dates: start: 20030926, end: 20030926

REACTIONS (2)
  - FATIGUE [None]
  - NAUSEA [None]
